FAERS Safety Report 20824624 (Version 2)
Quarter: 2023Q1

REPORT INFORMATION
  Report Type: Spontaneous
  Country: US (occurrence: US)
  Receive Date: 20220513
  Receipt Date: 20230329
  Transmission Date: 20230418
  Serious: Yes (Other)
  Sender: FDA-Public Use
  Company Number: US-SUN PHARMACEUTICAL INDUSTRIES LTD-2022R1-328265

PATIENT
  Age: 70 Year
  Sex: Female

DRUGS (2)
  1. ILUMYA [Suspect]
     Active Substance: TILDRAKIZUMAB-ASMN
     Indication: Psoriasis
     Dosage: UNK (INJECT 100MG UNDER THE SKIN EVERY 12 WEEKS)
     Route: 065
  2. ILUMYA [Suspect]
     Active Substance: TILDRAKIZUMAB-ASMN
     Dosage: UNK (INJECT 100MG UNDER THE SKIN EVERY 12 WEEKS)
     Route: 065

REACTIONS (5)
  - Barrett^s oesophagus [Unknown]
  - Disease progression [Unknown]
  - Product dose omission issue [Unknown]
  - Illness [Unknown]
  - Inappropriate schedule of product administration [Unknown]

NARRATIVE: CASE EVENT DATE: 20220501
